FAERS Safety Report 11241360 (Version 1)
Quarter: 2015Q3

REPORT INFORMATION
  Report Type: Spontaneous
  Country: NO (occurrence: NO)
  Receive Date: 20150706
  Receipt Date: 20150706
  Transmission Date: 20151125
  Serious: Yes (Hospitalization, Other)
  Sender: FDA-Public Use
  Company Number: NO-SHIRE-NO201506508

PATIENT
  Sex: Male

DRUGS (7)
  1. REMSIMA [Suspect]
     Active Substance: INFLIXIMAB
     Dosage: UNK UNK, UNKNOWN
     Route: 065
     Dates: start: 20141216, end: 20141216
  2. IMUREL                             /00001501/ [Suspect]
     Active Substance: AZATHIOPRINE SODIUM
     Indication: CROHN^S DISEASE
     Dosage: UNK UNK, UNKNOWN
     Route: 065
  3. 476 (MESALAZINE/MESALAMINE) [Suspect]
     Active Substance: MESALAMINE
     Indication: CROHN^S DISEASE
     Dosage: UNK, UNKNOWN
     Route: 065
  4. REMSIMA [Suspect]
     Active Substance: INFLIXIMAB
     Indication: CROHN^S DISEASE
     Dosage: 400 MG, UNKNOWN
     Route: 042
     Dates: start: 20141106, end: 20141106
  5. HUMIRA [Suspect]
     Active Substance: ADALIMUMAB
     Indication: CROHN^S DISEASE
     Dosage: UNK UNK, UNKNOWN
     Route: 065
     Dates: start: 20140808, end: 20141201
  6. REMSIMA [Suspect]
     Active Substance: INFLIXIMAB
     Dosage: UNK UNK, UNKNOWN
     Route: 065
  7. PREDNISOLON                        /00016201/ [Suspect]
     Active Substance: PREDNISOLONE
     Indication: CROHN^S DISEASE
     Dosage: UNK UNK, UNKNOWN
     Route: 065

REACTIONS (8)
  - Abdominal pain [Not Recovered/Not Resolved]
  - Infusion site pain [Unknown]
  - Pancreatitis relapsing [Not Recovered/Not Resolved]
  - Dizziness [Recovered/Resolved]
  - Product use issue [Unknown]
  - Nausea [Recovered/Resolved]
  - General physical health deterioration [Not Recovered/Not Resolved]
  - Crohn^s disease [Unknown]

NARRATIVE: CASE EVENT DATE: 20141106
